FAERS Safety Report 4876070-3 (Version None)
Quarter: 2006Q1

REPORT INFORMATION
  Report Type: 
  Country: None (occurrence: None)
  Receive Date: 20060106
  Receipt Date: 20060106
  Transmission Date: 20060701
  Serious: Yes (Hospitalization, Other)
  Sender: FDA-Public Use
  Company Number: None

PATIENT
  Sex: Male
  Weight: 107 kg

DRUGS (4)
  1. PACLITAXEL [Suspect]
     Indication: NON-SMALL CELL LUNG CANCER
     Dosage: SEE IMAGE
     Dates: start: 20051024, end: 20051128
  2. CARBOPLATIN [Suspect]
     Dosage: SEE IMAGE
     Dates: start: 20051024, end: 20051128
  3. . [Concomitant]
     Dosage: SEE IMAGE
  4. EXTERNAL BEAM, 3D [Suspect]
     Dosage: SEE IMAGE
     Dates: start: 20051214

REACTIONS (17)
  - ARRHYTHMIA [None]
  - ASTHENIA [None]
  - ATRIAL FIBRILLATION [None]
  - ATRIAL FLUTTER [None]
  - CARDIAC FAILURE CONGESTIVE [None]
  - DECREASED ACTIVITY [None]
  - DEEP VEIN THROMBOSIS [None]
  - DYSPNOEA [None]
  - DYSPNOEA EXERTIONAL [None]
  - EMBOLISM [None]
  - FATIGUE [None]
  - LETHARGY [None]
  - MALAISE [None]
  - PRODUCTIVE COUGH [None]
  - PYREXIA [None]
  - SUPRAVENTRICULAR TACHYCARDIA [None]
  - TACHYCARDIA [None]
